FAERS Safety Report 4284589-1 (Version None)
Quarter: 2004Q1

REPORT INFORMATION
  Report Type: 
  Country: None (occurrence: None)
  Receive Date: 20040130
  Receipt Date: 20040114
  Transmission Date: 20041129
  Serious: Yes (Other)
  Sender: FDA-Public Use
  Company Number: 2004005575

PATIENT

DRUGS (2)
  1. ATARAX [Suspect]
     Indication: ILL-DEFINED DISORDER
     Dosage: INTRAMUSCULAR
     Route: 030
  2. ATROPINE [Suspect]
     Indication: ILL-DEFINED DISORDER
     Dosage: INTRAMUSCLAR
     Route: 030

REACTIONS (2)
  - PAIN [None]
  - PARALYSIS [None]
